FAERS Safety Report 15319485 (Version 1)
Quarter: 2018Q3

REPORT INFORMATION
  Report Type: Spontaneous
  Country: BE (occurrence: BE)
  Receive Date: 20180827
  Receipt Date: 20180827
  Transmission Date: 20181010
  Serious: Yes (Hospitalization)
  Sender: FDA-Public Use
  Company Number: BE-TEVA-2018-BE-946870

PATIENT
  Sex: Female

DRUGS (1)
  1. MOXIFLOXACIN 400 MG [Suspect]
     Active Substance: MOXIFLOXACIN
     Dosage: 400 MILLIGRAM DAILY;
     Route: 048

REACTIONS (2)
  - Malaise [Unknown]
  - Pharyngeal oedema [Unknown]
